FAERS Safety Report 19306910 (Version 1)
Quarter: 2021Q2

REPORT INFORMATION
  Report Type: Spontaneous
  Country: US (occurrence: US)
  Receive Date: 20210526
  Receipt Date: 20210526
  Transmission Date: 20210717
  Serious: Yes (Other)
  Sender: FDA-Public Use
  Company Number: NVSC2021US116442

PATIENT

DRUGS (4)
  1. RIFAMPICIN [Suspect]
     Active Substance: RIFAMPIN
     Indication: PRODUCT USED FOR UNKNOWN INDICATION
     Dosage: 600 MG, QD (2X300 MG CAPSULES)
     Route: 048
  2. ONDANSETRON [Concomitant]
     Active Substance: ONDANSETRON
     Indication: PROPHYLAXIS OF NAUSEA AND VOMITING
     Dosage: 8 MG (ON DAY 1 AND 17)
     Route: 048
  3. FEDRATINIB [Suspect]
     Active Substance: FEDRATINIB
     Dosage: 500 MG (5X100 MG CAPSULES) (ON DAY 17)
     Route: 048
  4. FEDRATINIB [Suspect]
     Active Substance: FEDRATINIB
     Indication: PRODUCT USED FOR UNKNOWN INDICATION
     Dosage: 500 MG (5X100 MG CAPSULES) (ON DAY 1)
     Route: 048

REACTIONS (1)
  - Electrocardiogram T wave inversion [Recovered/Resolved]
